FAERS Safety Report 24548100 (Version 1)
Quarter: 2024Q4

REPORT INFORMATION
  Report Type: Report from Study
  Country: US (occurrence: US)
  Receive Date: 20241025
  Receipt Date: 20241025
  Transmission Date: 20250115
  Serious: Yes (Other)
  Sender: AUROBINDO
  Company Number: US-AUROBINDO-AUR-APL-2024-052244

PATIENT
  Age: 3 Decade

DRUGS (1)
  1. SULFAMETHOXAZOLE\TRIMETHOPRIM [Suspect]
     Active Substance: SULFAMETHOXAZOLE\TRIMETHOPRIM
     Indication: Otitis media
     Dosage: UNK
     Route: 065

REACTIONS (11)
  - Hypersensitivity [Recovered/Resolved]
  - Lymphopenia [Recovered/Resolved]
  - Acute kidney injury [Recovered/Resolved]
  - Erythema [Recovered/Resolved]
  - Conjunctivitis [Recovered/Resolved]
  - Face oedema [Recovered/Resolved]
  - Oedema [Recovered/Resolved]
  - Lymphadenopathy [Recovered/Resolved]
  - Hypotension [Recovered/Resolved]
  - Pyrexia [Recovered/Resolved]
  - Tachycardia [Recovered/Resolved]
